FAERS Safety Report 21166903 (Version 3)
Quarter: 2022Q4

REPORT INFORMATION
  Report Type: Spontaneous
  Country: GB (occurrence: GB)
  Receive Date: 20220803
  Receipt Date: 20221223
  Transmission Date: 20230113
  Serious: Yes (Death, Other)
  Sender: FDA-Public Use
  Company Number: None

PATIENT

DRUGS (29)
  1. PIPERACILLIN SODIUM\TAZOBACTAM SODIUM [Suspect]
     Active Substance: PIPERACILLIN SODIUM\TAZOBACTAM SODIUM
     Dates: start: 20210310, end: 20210328
  2. INSULIN HUMAN [Suspect]
     Active Substance: INSULIN HUMAN
     Dates: start: 20210310, end: 20210328
  3. AMOXICILLIN\CLAVULANATE POTASSIUM [Suspect]
     Active Substance: AMOXICILLIN\CLAVULANATE POTASSIUM
     Dates: start: 20210310, end: 20210328
  4. AMINOPHYLLINE [Suspect]
     Active Substance: AMINOPHYLLINE
     Dates: start: 20210310, end: 20210328
  5. KETAMINE [Suspect]
     Active Substance: KETAMINE
     Dates: start: 20210310, end: 20210328
  6. REMDESIVIR [Suspect]
     Active Substance: REMDESIVIR
     Dosage: UNK
     Dates: start: 20210310, end: 20210328
  7. TINZAPARIN [Suspect]
     Active Substance: TINZAPARIN
     Dates: start: 20210310, end: 20210328
  8. MAGNESIUM [Suspect]
     Active Substance: MAGNESIUM
     Dates: start: 20210310, end: 20210328
  9. CLARITHROMYCIN [Suspect]
     Active Substance: CLARITHROMYCIN
     Dates: start: 20210310, end: 20210328
  10. DEXAMETHASONE [Suspect]
     Active Substance: DEXAMETHASONE
     Dates: start: 20210310, end: 20210328
  11. METOCLOPRAMIDE [Suspect]
     Active Substance: METOCLOPRAMIDE
     Dates: start: 20210310, end: 20210328
  12. IPRATROPIUM [Suspect]
     Active Substance: IPRATROPIUM
     Dates: start: 20210310, end: 20210328
  13. PROPOFOL [Suspect]
     Active Substance: PROPOFOL
     Dates: start: 20210310, end: 20210328
  14. ALBUTEROL [Suspect]
     Active Substance: ALBUTEROL
     Dates: start: 20210310, end: 20210328
  15. FENTANYL [Suspect]
     Active Substance: FENTANYL
     Dates: start: 20210310, end: 20210328
  16. TEICOPLANIN [Suspect]
     Active Substance: TEICOPLANIN
     Dates: start: 20210310, end: 20210328
  17. ANIDULAFUNGIN [Suspect]
     Active Substance: ANIDULAFUNGIN
     Dates: start: 20210310, end: 20210328
  18. ROCURONIUM [Suspect]
     Active Substance: ROCURONIUM BROMIDE
     Dates: start: 20210310, end: 20210328
  19. MELATONIN [Suspect]
     Active Substance: MELATONIN
     Dates: start: 20210310, end: 20210328
  20. LANSOPRAZOLE [Suspect]
     Active Substance: LANSOPRAZOLE
     Indication: Gastrooesophageal reflux disease
     Dates: start: 20210310, end: 20210328
  21. LEVOFLOXACIN [Suspect]
     Active Substance: LEVOFLOXACIN
     Dates: start: 20210310, end: 20210328
  22. HEPARIN [Suspect]
     Active Substance: HEPARIN SODIUM
     Dates: start: 20210310, end: 20210328
  23. GLUCONIC ACID [Suspect]
     Active Substance: GLUCONIC ACID
     Dates: start: 20210310, end: 20210328
  24. ACETAMINOPHEN [Suspect]
     Active Substance: ACETAMINOPHEN
     Dates: start: 20210310, end: 20210328
  25. FUROSEMIDE [Suspect]
     Active Substance: FUROSEMIDE
     Dates: start: 20210310, end: 20210328
  26. EPOPROSTENOL [Suspect]
     Active Substance: EPOPROSTENOL
     Dates: start: 20210310, end: 20210328
  27. OMEPRAZOLE [Suspect]
     Active Substance: OMEPRAZOLE
     Indication: Duodenal ulcer
     Dates: start: 20210310, end: 20210328
  28. MEROPENEM [Suspect]
     Active Substance: MEROPENEM
     Dates: start: 20210310, end: 20210328
  29. TOCILIZUMAB [Suspect]
     Active Substance: TOCILIZUMAB
     Dates: start: 20210310, end: 20210328

REACTIONS (4)
  - Multiple organ dysfunction syndrome [Fatal]
  - Contraindicated product administered [Fatal]
  - Drug ineffective [Fatal]
  - COVID-19 pneumonia [Fatal]
